FAERS Safety Report 7575030 (Version 3)
Quarter: 2012Q4

REPORT INFORMATION
  Report Type: Report from Study
  Country: US (occurrence: US)
  Receive Date: 20100907
  Receipt Date: 20120912
  Transmission Date: 20130627
  Serious: Yes (Death, Hospitalization, Other)
  Sender: FDA-Public Use
  Company Number: US-ROCHE-725105

PATIENT
  Age: 57 Year
  Sex: Male
  Weight: 100.64 kg

DRUGS (16)
  1. AVASTIN [Suspect]
     Indication: NON-SMALL CELL LUNG CANCER
     Route: 042
     Dates: start: 20100622, end: 20100803
  2. PEMETREXED DISODIUM [Suspect]
     Indication: NON-SMALL CELL LUNG CANCER
     Route: 042
     Dates: start: 20100622, end: 20100803
  3. CARBOPLATIN [Suspect]
     Indication: NON-SMALL CELL LUNG CANCER
     Dosage: dose: 6 D/F
     Route: 042
     Dates: start: 20100622, end: 20100803
  4. FOLIC ACID [Concomitant]
     Route: 065
  5. LORAZEPAM [Concomitant]
     Route: 065
  6. PROCHLORPERAZINE MALEATE [Concomitant]
     Route: 065
  7. METFORMIN [Concomitant]
     Route: 065
  8. ONDANSETRON HYDROCHLORIDE [Concomitant]
     Route: 065
  9. WARFARIN [Concomitant]
     Route: 065
  10. LIDOCAINE [Concomitant]
     Route: 065
  11. VITAMIN B12 [Concomitant]
     Route: 065
  12. DEXAMETHASONE [Concomitant]
     Route: 065
  13. FENOFIBRATE [Concomitant]
     Route: 065
  14. FENTANYL [Concomitant]
     Route: 065
  15. GABAPENTIN [Concomitant]
     Route: 065
     Dates: start: 20100629
  16. OXYCODONE [Concomitant]

REACTIONS (5)
  - Microangiopathic haemolytic anaemia [Fatal]
  - Cerebrovascular accident [Fatal]
  - Cerebrovascular accident [Recovered/Resolved]
  - Infection [Recovered/Resolved]
  - Disseminated intravascular coagulation [Unknown]
